FAERS Safety Report 5261086-8 (Version None)
Quarter: 2007Q1

REPORT INFORMATION
  Report Type: 
  Country: None (occurrence: None)
  Receive Date: 20070309
  Receipt Date: 20070228
  Transmission Date: 20070707
  Serious: No
  Sender: FDA-Public Use
  Company Number: 2006UW08292

PATIENT
  Sex: Male
  Weight: 109.1 kg

DRUGS (6)
  1. SEROQUEL [Suspect]
     Indication: BIPOLAR DISORDER
     Route: 048
     Dates: start: 20061207
  2. SEROQUEL [Suspect]
     Indication: DEPRESSION
     Route: 048
     Dates: start: 20061207
  3. HALDOL [Concomitant]
  4. ZYPREXA [Concomitant]
  5. CELEXA [Concomitant]
  6. CITALOPRAM HYDROBROMIDE [Concomitant]

REACTIONS (1)
  - DIABETES MELLITUS NON-INSULIN-DEPENDENT [None]
